FAERS Safety Report 8997432 (Version 1)
Quarter: 2013Q1

REPORT INFORMATION
  Report Type: Spontaneous
  Country: BE (occurrence: BE)
  Receive Date: 20130104
  Receipt Date: 20130104
  Transmission Date: 20140127
  Serious: Yes (Hospitalization)
  Sender: FDA-Public Use
  Company Number: BE-PFIZER INC-2013003632

PATIENT
  Sex: Male

DRUGS (2)
  1. MEDROL [Suspect]
     Dosage: 32 MG, SINGLE
     Route: 048
  2. NEXIAM [Suspect]
     Dosage: 40 MG, UNK
     Route: 048

REACTIONS (1)
  - Dysgeusia [Unknown]
